FAERS Safety Report 7454533-4 (Version None)
Quarter: 2011Q2

REPORT INFORMATION
  Report Type: 
  Country: None (occurrence: None)
  Receive Date: 20110503
  Receipt Date: 20110425
  Transmission Date: 20111010
  Serious: Yes (Death)
  Sender: FDA-Public Use
  Company Number: TW-ELI_LILLY_AND_COMPANY-TW201104007236

PATIENT

DRUGS (4)
  1. DEXAMETHASONE [Concomitant]
     Dosage: 4 MG, TWICE DAILY ON THE DAY BEFORE AND AFTER PEMETREXED TREATMENT
  2. FOLIC ACID [Concomitant]
     Dosage: 1000 UG, QD
     Route: 048
  3. VIT B12 [Concomitant]
     Dosage: 1000 UG, OTHER
     Route: 030
  4. PEMETREXED [Suspect]
     Indication: NON-SMALL CELL LUNG CANCER
     Dosage: 500 MG/M2, DAY1 OF EVERY 21DAYS
     Route: 042

REACTIONS (1)
  - DEATH [None]
